FAERS Safety Report 22839984 (Version 2)
Quarter: 2023Q4

REPORT INFORMATION
  Report Type: Spontaneous
  Country: CA (occurrence: CA)
  Receive Date: 20230818
  Receipt Date: 20231108
  Transmission Date: 20240109
  Serious: Yes (Hospitalization)
  Sender: FDA-Public Use
  Company Number: CA-FreseniusKabi-FK202312610

PATIENT
  Age: 12 Month
  Sex: Female
  Weight: 9 kg

DRUGS (15)
  1. ETOPOSIDE [Suspect]
     Active Substance: ETOPOSIDE
     Indication: Choroid plexus carcinoma
     Dosage: DOSAGE FORM: NOT SPECIFIED
     Route: 065
  2. IFOSFAMIDE [Suspect]
     Active Substance: IFOSFAMIDE
     Indication: Choroid plexus carcinoma
     Dosage: DOSAGE FORM: POWDER FOR SOLUTION INTRAVENOUS
     Route: 042
  3. MESNA [Suspect]
     Active Substance: MESNA
     Indication: Choroid plexus carcinoma
     Dosage: DOSAGE FORM: NOT SPECIFIED
     Route: 065
  4. CARBOPLATIN [Suspect]
     Active Substance: CARBOPLATIN
     Indication: Choroid plexus carcinoma
     Route: 042
  5. CARBOPLATIN [Suspect]
     Active Substance: CARBOPLATIN
  6. ONDANSETRON [Suspect]
     Active Substance: ONDANSETRON
     Indication: Choroid plexus carcinoma
     Route: 065
  7. VITAMIN D [Concomitant]
     Active Substance: VITAMIN D NOS
     Indication: Product used for unknown indication
  8. ACETAMINOPHEN [Concomitant]
     Active Substance: ACETAMINOPHEN
     Indication: Product used for unknown indication
  9. DIMENHYDRINATE [Concomitant]
     Active Substance: DIMENHYDRINATE
     Indication: Product used for unknown indication
  10. FILGRASTIM [Concomitant]
     Active Substance: FILGRASTIM
     Indication: Product used for unknown indication
  11. HYDROCORTISONE [Concomitant]
     Active Substance: HYDROCORTISONE
     Indication: Product used for unknown indication
  12. POLYETHYLENE GLYCOL [Concomitant]
     Active Substance: POLYETHYLENE GLYCOL
     Indication: Product used for unknown indication
  13. SULFAMETHOXAZOLE AND TRIMETHOPRIM [Concomitant]
     Active Substance: SULFAMETHOXAZOLE\TRIMETHOPRIM
     Indication: Product used for unknown indication
     Route: 065
  14. LANSOPRAZOLE [Concomitant]
     Active Substance: LANSOPRAZOLE
     Indication: Product used for unknown indication
     Route: 065
  15. salt-soda mouthwash [Concomitant]
     Indication: Product used for unknown indication

REACTIONS (2)
  - Febrile neutropenia [Recovered/Resolved]
  - Product use in unapproved indication [Recovered/Resolved]
